FAERS Safety Report 24926623 (Version 2)
Quarter: 2025Q1

REPORT INFORMATION
  Report Type: Report from Study
  Country: SA (occurrence: SA)
  Receive Date: 20250205
  Receipt Date: 20250227
  Transmission Date: 20250409
  Serious: Yes (Hospitalization, Other)
  Sender: ABBVIE
  Company Number: SA-ABBVIE-6114669

PATIENT
  Age: 63 Year
  Sex: Female

DRUGS (5)
  1. CARBIDOPA\LEVODOPA [Suspect]
     Active Substance: CARBIDOPA\LEVODOPA
     Indication: Parkinson^s disease
     Route: 050
     Dates: start: 20240219
  2. CARBIDOPA\LEVODOPA [Suspect]
     Active Substance: CARBIDOPA\LEVODOPA
  3. ROTIGOTINE [Concomitant]
     Active Substance: ROTIGOTINE
     Indication: Product used for unknown indication
     Dosage: FORM STRENGTH: 4 MG, TRANSDERMAL PATCH
     Route: 062
  4. QUETIAPINE [Concomitant]
     Active Substance: QUETIAPINE
     Indication: Product used for unknown indication
     Route: 048
  5. CITALOPRAM [Concomitant]
     Active Substance: CITALOPRAM
     Indication: Product used for unknown indication
     Dosage: FORM STRENGTH: 10 MG
     Route: 048

REACTIONS (8)
  - Irritability [Recovering/Resolving]
  - Hypotension [Recovering/Resolving]
  - Haemodynamic instability [Recovered/Resolved]
  - Cardio-respiratory arrest [Recovered/Resolved]
  - Pain in extremity [Recovering/Resolving]
  - Back pain [Recovering/Resolving]
  - Cortical laminar necrosis [Unknown]
  - Brain oedema [Unknown]

NARRATIVE: CASE EVENT DATE: 20241227
